FAERS Safety Report 5811318-X (Version None)
Quarter: 2008Q3

REPORT INFORMATION
  Report Type: 
  Country: None (occurrence: None)
  Receive Date: 20080710
  Receipt Date: 20080630
  Transmission Date: 20090109
  Serious: Yes (Life-Threatening)
  Sender: FDA-Public Use
  Company Number: GXKR2008IT06007

PATIENT
  Sex: Male

DRUGS (2)
  1. ALPRAZOLAM [Suspect]
  2. VALPROIC ACID [Suspect]

REACTIONS (4)
  - EOSINOPHILIA [None]
  - HEPATIC FAILURE [None]
  - HEPATITIS ACUTE [None]
  - STEVENS-JOHNSON SYNDROME [None]
